FAERS Safety Report 9647780 (Version 1)
Quarter: 2013Q4

REPORT INFORMATION
  Report Type: Spontaneous
  Country: IT (occurrence: IT)
  Receive Date: 20131028
  Receipt Date: 20131028
  Transmission Date: 20140711
  Serious: Yes (Hospitalization)
  Sender: FDA-Public Use
  Company Number: IT-ROCHE-1294596

PATIENT
  Age: 44 Year
  Sex: Female
  Weight: 42 kg

DRUGS (3)
  1. AVASTIN [Suspect]
     Indication: CARCINOID TUMOUR OF THE CAECUM
     Route: 042
     Dates: start: 20130918, end: 20130918
  2. IRINOTECAN [Concomitant]
     Indication: CARCINOID TUMOUR OF THE CAECUM
     Route: 042
     Dates: start: 20131003, end: 20131003
  3. FLUOROURACIL [Concomitant]
     Route: 042
     Dates: start: 20131003, end: 20131003

REACTIONS (2)
  - Acute abdomen [Unknown]
  - Intestinal perforation [Unknown]
